FAERS Safety Report 9306133 (Version 1)
Quarter: 2013Q2

REPORT INFORMATION
  Report Type: Spontaneous
  Country: NZ (occurrence: NZ)
  Receive Date: 20130523
  Receipt Date: 20130523
  Transmission Date: 20140414
  Serious: Yes (Hospitalization)
  Sender: FDA-Public Use
  Company Number: NZ-ELI_LILLY_AND_COMPANY-NZ201305005168

PATIENT
  Age: 26 Year
  Sex: Male

DRUGS (3)
  1. OLANZAPINE [Suspect]
     Indication: PSYCHOTIC DISORDER
     Dosage: UNK, QD
     Route: 048
  2. VALPROIC ACID [Concomitant]
     Dosage: UNK, QD
  3. CLOZAPINE [Concomitant]
     Indication: SCHIZOPHRENIA
     Dosage: 300 MG, QD
     Route: 048
     Dates: start: 20121015, end: 20121031

REACTIONS (5)
  - Chest discomfort [Not Recovered/Not Resolved]
  - Diarrhoea [Not Recovered/Not Resolved]
  - C-reactive protein increased [Not Recovered/Not Resolved]
  - Tachycardia [Not Recovered/Not Resolved]
  - Pyrexia [Not Recovered/Not Resolved]
